FAERS Safety Report 5733316-7 (Version None)
Quarter: 2008Q2

REPORT INFORMATION
  Report Type: 
  Country: None (occurrence: None)
  Receive Date: 20080509
  Receipt Date: 20080507
  Transmission Date: 20081010
  Serious: Yes (Hospitalization, Other)
  Sender: FDA-Public Use
  Company Number: GB-BRISTOL-MYERS SQUIBB COMPANY-14181614

PATIENT
  Sex: Female

DRUGS (2)
  1. ABILIFY [Suspect]
  2. PARACETAMOL [Suspect]
     Dates: start: 20080506

REACTIONS (2)
  - ALANINE AMINOTRANSFERASE DECREASED [None]
  - OVERDOSE [None]
